FAERS Safety Report 5734173-5 (Version None)
Quarter: 2008Q2

REPORT INFORMATION
  Report Type: 
  Country: None (occurrence: None)
  Receive Date: 20080510
  Receipt Date: 20080502
  Transmission Date: 20081010
  Serious: Yes (Other)
  Sender: FDA-Public Use
  Company Number: PHHY2008BR07167

PATIENT
  Sex: Female

DRUGS (6)
  1. TRILEPTAL [Suspect]
     Route: 048
  2. TRILEPTAL [Suspect]
     Route: 048
     Dates: start: 20061231
  3. PAROXETINE HCL [Concomitant]
     Indication: OBSESSIVE-COMPULSIVE DISORDER
     Dosage: 20 MG, QD
     Route: 048
     Dates: start: 20040101
  4. CLONAZEPAM [Concomitant]
     Indication: OBSESSIVE-COMPULSIVE DISORDER
     Dosage: 0.5 MG, BID
     Route: 048
     Dates: start: 20040101
  5. RESPEDRIM [Concomitant]
  6. TEGRETOL [Suspect]
     Dosage: 200 MG, BID
     Route: 048
     Dates: start: 20080424

REACTIONS (17)
  - ACTIVITIES OF DAILY LIVING IMPAIRED [None]
  - CONFUSIONAL STATE [None]
  - CRYING [None]
  - DEJA VU [None]
  - DELUSION [None]
  - DEPRESSED MOOD [None]
  - DRUG EXPOSURE DURING PREGNANCY [None]
  - DRUG INEFFECTIVE [None]
  - ECONOMIC PROBLEM [None]
  - FEELING ABNORMAL [None]
  - PANIC DISORDER [None]
  - PREGNANCY [None]
  - PSYCHIATRIC SYMPTOM [None]
  - THINKING ABNORMAL [None]
  - TONGUE PARALYSIS [None]
  - TREATMENT NONCOMPLIANCE [None]
  - WEIGHT DECREASED [None]
